FAERS Safety Report 8447948-9 (Version None)
Quarter: 2012Q2

REPORT INFORMATION
  Report Type: 
  Country: None (occurrence: None)
  Receive Date: 20120619
  Receipt Date: 20120615
  Transmission Date: 20120825
  Serious: Yes (Life-Threatening, Hospitalization, Other)
  Sender: FDA-Public Use
  Company Number: PHHY2011DE31110

PATIENT
  Sex: Male
  Weight: 75 kg

DRUGS (11)
  1. MARCUMAR [Concomitant]
     Dosage: ACCORDING INR
     Route: 048
  2. PROPRANOLOL HCL [Concomitant]
     Dosage: 10 MG, QD
     Route: 048
  3. RAMIPRIL [Concomitant]
     Dosage: 5 MG, BID
     Route: 048
  4. ABNOBAVISCUM [Concomitant]
     Indication: ONCOLOGIC COMPLICATION
     Dosage: 0.2 MG, UNK
     Route: 058
     Dates: start: 20110310
  5. OMEPRAZOLE [Concomitant]
     Indication: GASTRIC DISORDER
     Dosage: 40 MG, BID
     Route: 048
  6. ACE INHIBITORS [Concomitant]
  7. HUMALOG [Concomitant]
     Indication: DIABETES MELLITUS
     Dosage: AS NEEDED
     Route: 058
  8. LEVEMIR [Concomitant]
     Indication: DIABETES MELLITUS
     Dosage: AS NEEDED
     Route: 058
  9. ALLOBETA [Concomitant]
     Dosage: UNK UKN, QD
     Route: 048
  10. AFINITOR [Suspect]
     Indication: RENAL CELL CARCINOMA
     Dosage: 10 MG, DAILY
     Route: 048
     Dates: start: 20110113, end: 20110412
  11. DICLAC [Concomitant]
     Dosage: 100 MG, BID
     Route: 048

REACTIONS (15)
  - PLEURAL EFFUSION [None]
  - DYSPNOEA [None]
  - ANAEMIA [None]
  - FATIGUE [None]
  - PNEUMONIA [None]
  - PNEUMONITIS [None]
  - CARDIAC DISORDER [None]
  - MALAISE [None]
  - PULMONARY EMBOLISM [None]
  - RENAL IMPAIRMENT [None]
  - CARDIOMEGALY [None]
  - RIGHT VENTRICULAR FAILURE [None]
  - DIABETES MELLITUS [None]
  - GAMMA-GLUTAMYLTRANSFERASE INCREASED [None]
  - CHILLS [None]
